FAERS Safety Report 16938917 (Version 1)
Quarter: 2019Q4

REPORT INFORMATION
  Report Type: Spontaneous
  Country: US (occurrence: US)
  Receive Date: 20190828
  Receipt Date: 20190828
  Transmission Date: 20200122
  Serious: Yes (Other)
  Sender: FDA-Public Use
  Company Number: None

PATIENT
  Age: 79 Year
  Sex: Female
  Weight: 70.31 kg

DRUGS (2)
  1. LUSTER PREMIUM WHITE PRO LIGHT DENTAL WHITENING SYSTEM [Suspect]
     Active Substance: SODIUM MONOFLUOROPHOSPHATE
     Indication: DENTAL CLEANING
  2. NO DRUG NAME [Concomitant]

REACTIONS (2)
  - Application site pain [None]
  - Reaction to excipient [None]

NARRATIVE: CASE EVENT DATE: 20190805
